FAERS Safety Report 18142298 (Version 2)
Quarter: 2021Q2

REPORT INFORMATION
  Report Type: Spontaneous
  Country: IT (occurrence: IT)
  Receive Date: 20200812
  Receipt Date: 20210528
  Transmission Date: 20210717
  Serious: Yes (Other)
  Sender: FDA-Public Use
  Company Number: IT-PFIZER INC-2020308100

PATIENT
  Age: 42 Year
  Sex: Male

DRUGS (1)
  1. BASSADO [Suspect]
     Active Substance: DOXYCYCLINE
     Indication: FUNGAL INFECTION
     Dosage: UNK
     Dates: start: 20200708

REACTIONS (2)
  - Rash erythematous [Recovering/Resolving]
  - Drug hypersensitivity [Recovering/Resolving]

NARRATIVE: CASE EVENT DATE: 20200709
